FAERS Safety Report 10074456 (Version 1)
Quarter: 2014Q2

REPORT INFORMATION
  Report Type: Spontaneous
  Country: US (occurrence: US)
  Receive Date: 20140411
  Receipt Date: 20140411
  Transmission Date: 20141212
  Serious: No
  Sender: FDA-Public Use
  Company Number: US-SANOFI-AVENTIS-2013SA092068

PATIENT
  Age: 32 Year
  Sex: Male

DRUGS (2)
  1. ALLEGRA D [Suspect]
     Indication: EAR CONGESTION
     Dosage: DOSE: 120/60 MG
     Route: 048
     Dates: start: 20130909
  2. ALL OTHER THERAPEUTIC PRODUCTS [Concomitant]

REACTIONS (1)
  - Drug ineffective [Unknown]
